FAERS Safety Report 4409445-7 (Version None)
Quarter: 2004Q3

REPORT INFORMATION
  Report Type: 
  Country: None (occurrence: None)
  Receive Date: 20040723
  Receipt Date: 20040709
  Transmission Date: 20050211
  Serious: Yes (Hospitalization)
  Sender: FDA-Public Use
  Company Number: USA-2002-003154

PATIENT
  Sex: Male

DRUGS (1)
  1. CAMPATH [Suspect]
     Indication: STEM CELL TRANSPLANT
     Dates: start: 20020101

REACTIONS (2)
  - CHEST PAIN [None]
  - LUNG DISORDER [None]
